FAERS Safety Report 23518028 (Version 1)
Quarter: 2024Q1

REPORT INFORMATION
  Report Type: 
  Country: None (occurrence: None)
  Receive Date: 20240213
  Receipt Date: 20240213
  Transmission Date: 20240410
  Serious: No
  Sender: FDA-Public Use
  Company Number: GB-ROCHE-3232077

PATIENT

DRUGS (6)
  1. TOCILIZUMAB [Suspect]
     Active Substance: TOCILIZUMAB
  2. TOCILIZUMAB [Suspect]
     Active Substance: TOCILIZUMAB
     Dates: start: 202212
  3. OMEPRAZOLE [Concomitant]
     Active Substance: OMEPRAZOLE
  4. MYCOPHENOLATE MOFETIL [Concomitant]
     Active Substance: MYCOPHENOLATE MOFETIL
  5. MOVICOL [Concomitant]
     Active Substance: POLYETHYLENE GLYCOL 3350\POTASSIUM CHLORIDE\SODIUM BICARBONATE\SODIUM CHLORIDE
  6. AZITHROMYCIN [Concomitant]
     Active Substance: AZITHROMYCIN

REACTIONS (3)
  - Off label use [None]
  - Pain [None]
  - Lymphadenopathy [None]
